FAERS Safety Report 9350573 (Version 1)
Quarter: 2013Q2

REPORT INFORMATION
  Report Type: Spontaneous
  Country: US (occurrence: US)
  Receive Date: 20130617
  Receipt Date: 20130617
  Transmission Date: 20140414
  Serious: No
  Sender: FDA-Public Use
  Company Number: US-009507513-1306USA001702

PATIENT
  Sex: Female

DRUGS (14)
  1. PRINIVIL [Suspect]
     Route: 048
  2. ZESTRIL [Suspect]
     Route: 048
  3. METHOTREXATE [Suspect]
     Route: 048
  4. PREDNISONE [Suspect]
     Route: 048
  5. AMITRIPTYLINE HYDROCHLORIDE [Suspect]
     Route: 048
  6. METOPROLOL [Concomitant]
  7. FLEXERIL [Concomitant]
  8. PERCOCET [Concomitant]
  9. LANTUS [Concomitant]
  10. NOVOLOG [Concomitant]
  11. VITAMIN D (UNSPECIFIED) [Concomitant]
  12. PLAQUENIL [Concomitant]
  13. LASIX (FUROSEMIDE SODIUM) [Concomitant]
  14. POTASSIUM (UNSPECIFIED) [Concomitant]

REACTIONS (1)
  - Weight increased [Unknown]
